FAERS Safety Report 7142112-8 (Version None)
Quarter: 2010Q4

REPORT INFORMATION
  Report Type: 
  Country: None (occurrence: None)
  Receive Date: 20101207
  Receipt Date: 20101202
  Transmission Date: 20110411
  Serious: Yes (Death)
  Sender: FDA-Public Use
  Company Number: CO-BRISTOL-MYERS SQUIBB COMPANY-15419203

PATIENT
  Age: 40 Year
  Sex: Female

DRUGS (3)
  1. ORENCIA [Suspect]
     Indication: ARTHRITIS
     Dosage: 3 DOSES
  2. METHOTREXATE [Suspect]
  3. ENBREL [Suspect]

REACTIONS (3)
  - ARTHRITIS [None]
  - MUCOSAL INFLAMMATION [None]
  - SEPSIS [None]
